FAERS Safety Report 26020707 (Version 1)
Quarter: 2025Q4

REPORT INFORMATION
  Report Type: Spontaneous
  Country: US (occurrence: US)
  Receive Date: 20251110
  Receipt Date: 20251110
  Transmission Date: 20260118
  Serious: Yes (Death, Other)
  Sender: Onesource Specialty Pharma
  Company Number: US-STRIDES ARCOLAB LIMITED-2025OS001131

PATIENT
  Age: 7 Decade
  Sex: Male

DRUGS (22)
  1. ETOPOSIDE [Suspect]
     Active Substance: ETOPOSIDE
     Indication: Blastic plasmacytoid dendritic cell neoplasia
     Dosage: UNK, PART OF COEP REGIMEN
     Route: 065
  2. ETOPOSIDE [Suspect]
     Active Substance: ETOPOSIDE
     Indication: Metastatic neoplasm
  3. TAGRAXOFUSP [Suspect]
     Active Substance: TAGRAXOFUSP
     Indication: Blastic plasmacytoid dendritic cell neoplasia
     Dosage: UNK
     Route: 065
  4. TAGRAXOFUSP [Suspect]
     Active Substance: TAGRAXOFUSP
     Indication: Metastatic neoplasm
  5. VENETOCLAX [Suspect]
     Active Substance: VENETOCLAX
     Indication: Blastic plasmacytoid dendritic cell neoplasia
     Dosage: UNK
     Route: 065
  6. VENETOCLAX [Suspect]
     Active Substance: VENETOCLAX
     Indication: Metastatic neoplasm
  7. DECITABINE [Suspect]
     Active Substance: DECITABINE
     Indication: Blastic plasmacytoid dendritic cell neoplasia
     Dosage: UNK
     Route: 065
  8. DECITABINE [Suspect]
     Active Substance: DECITABINE
     Indication: Metastatic neoplasm
  9. CYCLOPHOSPHAMIDE [Suspect]
     Active Substance: CYCLOPHOSPHAMIDE
     Indication: Blastic plasmacytoid dendritic cell neoplasia
     Dosage: UNK, PART OF COEP REGIMEN
     Route: 065
  10. CYCLOPHOSPHAMIDE [Suspect]
     Active Substance: CYCLOPHOSPHAMIDE
     Indication: Metastatic neoplasm
  11. VINCRISTINE [Suspect]
     Active Substance: VINCRISTINE
     Indication: Blastic plasmacytoid dendritic cell neoplasia
     Dosage: UNK, PART OF COEP REGIMEN
     Route: 065
  12. VINCRISTINE [Suspect]
     Active Substance: VINCRISTINE
     Indication: Metastatic neoplasm
  13. PREDNISONE [Suspect]
     Active Substance: PREDNISONE
     Indication: Blastic plasmacytoid dendritic cell neoplasia
     Dosage: UNK, PART OF COEP REGIMEN
     Route: 065
  14. PREDNISONE [Suspect]
     Active Substance: PREDNISONE
     Indication: Metastatic neoplasm
  15. FLUDARABINE [Suspect]
     Active Substance: FLUDARABINE PHOSPHATE
     Indication: Blastic plasmacytoid dendritic cell neoplasia
     Dosage: UNK, PART OF FLAG-IDA REGIMEN
     Route: 065
  16. FLUDARABINE [Suspect]
     Active Substance: FLUDARABINE PHOSPHATE
     Indication: Metastatic neoplasm
  17. CYTARABINE [Suspect]
     Active Substance: CYTARABINE
     Indication: Blastic plasmacytoid dendritic cell neoplasia
     Dosage: UNK, PART OF FLAG-IDA REGIMEN
     Route: 065
  18. CYTARABINE [Suspect]
     Active Substance: CYTARABINE
     Indication: Metastatic neoplasm
  19. IDARUBICIN [Suspect]
     Active Substance: IDARUBICIN
     Indication: Blastic plasmacytoid dendritic cell neoplasia
     Dosage: UNK, PART OF FLAG-IDA REGIMEN
     Route: 065
  20. IDARUBICIN [Suspect]
     Active Substance: IDARUBICIN
     Indication: Metastatic neoplasm
  21. GRANULOCYTE COLONY-STIMULATING FACTOR NOS [Suspect]
     Active Substance: GRANULOCYTE COLONY-STIMULATING FACTOR NOS
     Indication: Blastic plasmacytoid dendritic cell neoplasia
     Dosage: UNK
     Route: 065
  22. GRANULOCYTE COLONY-STIMULATING FACTOR NOS [Suspect]
     Active Substance: GRANULOCYTE COLONY-STIMULATING FACTOR NOS
     Indication: Metastatic neoplasm

REACTIONS (1)
  - Drug ineffective for unapproved indication [Fatal]
